FAERS Safety Report 23530294 (Version 2)
Quarter: 2024Q1

REPORT INFORMATION
  Report Type: Spontaneous
  Country: JP (occurrence: JP)
  Receive Date: 20240216
  Receipt Date: 20240303
  Transmission Date: 20240410
  Serious: Yes (Death)
  Sender: FDA-Public Use
  Company Number: JP-ABBVIE-5642554

PATIENT
  Age: 60 Year
  Sex: Male

DRUGS (3)
  1. VENCLEXTA [Suspect]
     Active Substance: VENETOCLAX
     Indication: Acute myeloid leukaemia recurrent
     Route: 048
     Dates: start: 20240118, end: 20240130
  2. BARIUM [Concomitant]
     Active Substance: BARIUM
     Indication: Product used for unknown indication
     Dosage: 6.6
  3. POSACONAZOLE [Concomitant]
     Active Substance: POSACONAZOLE
     Indication: Product used for unknown indication

REACTIONS (3)
  - Acute myeloid leukaemia [Fatal]
  - Diarrhoea [Unknown]
  - Pyrexia [Unknown]

NARRATIVE: CASE EVENT DATE: 20240130
